FAERS Safety Report 4512815-X (Version None)
Quarter: 2004Q4

REPORT INFORMATION
  Report Type: 
  Country: None (occurrence: None)
  Receive Date: 20041130
  Receipt Date: 20041118
  Transmission Date: 20050328
  Serious: Yes (Hospitalization, Other)
  Sender: FDA-Public Use
  Company Number: US-JNJFOC-20040901213

PATIENT
  Sex: Female
  Weight: 56.7 kg

DRUGS (11)
  1. REMICADE [Suspect]
     Dosage: THREE VIALS
     Route: 042
  2. REMICADE [Suspect]
     Route: 042
  3. REMICADE [Suspect]
     Indication: RHEUMATOID ARTHRITIS
     Dosage: 3 VIALS
     Route: 042
  4. BEXTRA [Concomitant]
     Indication: RHEUMATOID ARTHRITIS
     Dosage: ONCE OR TWICE DAILY.
  5. FOLIC ACID [Concomitant]
  6. HYZAAR [Concomitant]
  7. HYZAAR [Concomitant]
     Indication: HYPERTENSION
  8. PLAVIX [Concomitant]
  9. AROMASIN [Concomitant]
     Indication: BREAST CANCER
  10. TAMOXIFEN CITRATE [Concomitant]
     Dates: start: 20040101
  11. MULTIVITAMIN [Concomitant]

REACTIONS (11)
  - ANXIETY [None]
  - BLOOD PRESSURE INCREASED [None]
  - CEREBROVASCULAR ACCIDENT [None]
  - CHEST PAIN [None]
  - DIPLOPIA [None]
  - DIZZINESS [None]
  - DYSPNOEA [None]
  - INFUSION RELATED REACTION [None]
  - MEMORY IMPAIRMENT [None]
  - PALPITATIONS [None]
  - VISION BLURRED [None]
